FAERS Safety Report 12352844 (Version 2)
Quarter: 2016Q2

REPORT INFORMATION
  Report Type: Report from Study
  Country: US (occurrence: US)
  Receive Date: 20160510
  Receipt Date: 20160606
  Transmission Date: 20160815
  Serious: Yes (Death, Other)
  Sender: FDA-Public Use
  Company Number: US-GILEAD-2016-0212579

PATIENT
  Age: 89 Year
  Sex: Male

DRUGS (14)
  1. PREDNISONE. [Concomitant]
     Active Substance: PREDNISONE
  2. CARVEDILOL. [Concomitant]
     Active Substance: CARVEDILOL
  3. FUROSEMIDE. [Concomitant]
     Active Substance: FUROSEMIDE
  4. MULTIVITAMIN                       /00097801/ [Concomitant]
     Active Substance: VITAMINS
  5. SIMVASTATIN. [Concomitant]
     Active Substance: SIMVASTATIN
  6. XARELTO [Concomitant]
     Active Substance: RIVAROXABAN
  7. MUCINEX [Concomitant]
     Active Substance: GUAIFENESIN
  8. VITAMIN D3 [Concomitant]
     Active Substance: CHOLECALCIFEROL
  9. ASPIRIN                            /00002701/ [Concomitant]
     Active Substance: ASPIRIN
  10. XANAX [Concomitant]
     Active Substance: ALPRAZOLAM
  11. AMBRISENTAN [Suspect]
     Active Substance: AMBRISENTAN
     Indication: PULMONARY HYPERTENSION
     Dosage: 10 MG, QD
     Route: 065
     Dates: start: 20100331
  12. TAMSULOSIN [Concomitant]
     Active Substance: TAMSULOSIN
  13. BETHANECHOL [Concomitant]
     Active Substance: BETHANECHOL
  14. TYLENOL [Concomitant]
     Active Substance: ACETAMINOPHEN

REACTIONS (1)
  - Cardiac disorder [Fatal]

NARRATIVE: CASE EVENT DATE: 20160430
